FAERS Safety Report 6543200-7 (Version None)
Quarter: 2010Q1

REPORT INFORMATION
  Report Type: 
  Country: None (occurrence: None)
  Receive Date: 20100120
  Receipt Date: 20100115
  Transmission Date: 20100710
  Serious: Yes (Death, Life-Threatening, Other)
  Sender: FDA-Public Use
  Company Number: GB-BRISTOL-MYERS SQUIBB COMPANY-14543045

PATIENT
  Age: 11 Year
  Sex: Male
  Weight: 38 kg

DRUGS (33)
  1. ETOPOSIDE [Suspect]
     Indication: ACUTE LYMPHOCYTIC LEUKAEMIA RECURRENT
     Dosage: DOSAGES/INTERVAL: 5/
     Route: 042
     Dates: start: 20090101, end: 20090109
  2. CYCLOPHOSPHAMIDE [Suspect]
     Indication: ACUTE LYMPHOCYTIC LEUKAEMIA RECURRENT
     Dosage: DOSAGES 5/
     Route: 042
     Dates: start: 20090101, end: 20090109
  3. EVOLTRA [Suspect]
     Indication: ACUTE LYMPHOCYTIC LEUKAEMIA RECURRENT
     Route: 042
     Dates: start: 20090101, end: 20090109
  4. DEXAMETHASONE [Concomitant]
     Route: 048
     Dates: start: 20090101, end: 20090108
  5. LACTULOSE [Concomitant]
     Indication: CONSTIPATION
     Route: 048
     Dates: start: 20081231, end: 20090107
  6. LOPERAMIDE [Concomitant]
     Indication: DIARRHOEA
     Route: 048
     Dates: start: 20090107, end: 20090113
  7. LORAZEPAM [Concomitant]
     Route: 048
     Dates: start: 20090106, end: 20090111
  8. METOCLOPRAMIDE [Concomitant]
     Indication: NAUSEA
     Dates: start: 20090101, end: 20090131
  9. OMEPRAZOLE [Concomitant]
     Indication: GASTROINTESTINAL DISORDER
     Route: 042
     Dates: start: 20090103, end: 20090131
  10. AMBISOME [Concomitant]
     Indication: FEBRILE NEUTROPENIA
     Route: 042
     Dates: start: 20090112, end: 20090118
  11. AMILORIDE HYDROCHLORIDE [Concomitant]
     Indication: HYPOKALAEMIA
     Route: 048
     Dates: start: 20090112, end: 20090115
  12. AMOXICILLIN [Concomitant]
     Indication: PROPHYLAXIS
     Route: 048
     Dates: start: 20090111, end: 20090115
  13. BENZYDAMINE HCL [Concomitant]
     Indication: MUCOSAL INFLAMMATION
     Route: 061
     Dates: start: 20090116, end: 20090131
  14. CEFTAZIDIME [Concomitant]
     Indication: FEBRILE NEUTROPENIA
     Route: 042
  15. CHLORHEXIDINE GLUCONATE [Concomitant]
     Indication: MUCOSAL INFLAMMATION
     Route: 061
     Dates: start: 20090116, end: 20090131
  16. CIPROFLOXACIN [Concomitant]
     Indication: PROPHYLAXIS
     Route: 048
  17. CO-TRIMOXAZOLE [Concomitant]
     Indication: PROPHYLAXIS
     Route: 048
     Dates: start: 20090110, end: 20090131
  18. CYCLIZINE [Concomitant]
     Indication: NAUSEA
     Route: 042
     Dates: end: 20090113
  19. DIHYDROCODEINE BITARTRATE INJ [Concomitant]
     Indication: ANALGESIC THERAPY
     Route: 048
  20. FRUSEMIDE [Concomitant]
     Indication: FLUID RETENTION
     Route: 042
  21. GENTAMICIN [Concomitant]
     Indication: FEBRILE NEUTROPENIA
     Route: 042
  22. METRONIDAZOLE [Concomitant]
     Indication: GASTROINTESTINAL INFECTION
     Route: 042
  23. MORPHINE [Concomitant]
     Indication: ANALGESIC THERAPY
  24. NIFEDIPINE [Concomitant]
     Indication: HYPERTENSION
     Route: 048
     Dates: start: 20090112
  25. PARACETAMOL [Concomitant]
     Indication: PYREXIA
     Dates: end: 20090103
  26. PARACETAMOL [Concomitant]
     Indication: PAIN
     Dates: end: 20090103
  27. RASBURICASE [Concomitant]
     Route: 042
  28. VINCRISTINE [Concomitant]
     Route: 042
     Dates: start: 20090101
  29. FLUCONAZOLE [Concomitant]
     Indication: PROPHYLAXIS
     Route: 048
     Dates: start: 20090119, end: 20090131
  30. ATIVAN [Concomitant]
     Route: 048
     Dates: start: 20090106, end: 20090111
  31. MEROPENEM [Concomitant]
     Indication: INFECTION
     Route: 042
     Dates: start: 20090127, end: 20090131
  32. TEICOPLANIN [Concomitant]
     Indication: INFECTION
     Route: 042
     Dates: start: 20090120, end: 20090131
  33. VANCOMYCIN [Concomitant]
     Indication: INFECTION
     Route: 042
     Dates: start: 20090129, end: 20090131

REACTIONS (12)
  - ABDOMINAL DISCOMFORT [None]
  - ABDOMINAL TENDERNESS [None]
  - DIARRHOEA [None]
  - HEADACHE [None]
  - HEPATITIS CHOLESTATIC [None]
  - HYPERTENSION [None]
  - ILEUS [None]
  - LOSS OF CONSCIOUSNESS [None]
  - NAUSEA [None]
  - NEUTROPENIC COLITIS [None]
  - SEPSIS [None]
  - VOMITING [None]
